FAERS Safety Report 21675424 (Version 1)
Quarter: 2022Q4

REPORT INFORMATION
  Report Type: Spontaneous
  Country: US (occurrence: None)
  Receive Date: 20221202
  Receipt Date: 20221202
  Transmission Date: 20230113
  Serious: No
  Sender: FDA-Public Use
  Company Number: None

PATIENT
  Age: 41 Year
  Sex: Female
  Weight: 64.8 kg

DRUGS (1)
  1. ZAFEMY [Suspect]
     Active Substance: ETHINYL ESTRADIOL\NORELGESTROMIN
     Indication: Dysmenorrhoea

REACTIONS (5)
  - Product substitution issue [None]
  - Therapeutic response decreased [None]
  - Intermenstrual bleeding [None]
  - Product adhesion issue [None]
  - Menstruation irregular [None]

NARRATIVE: CASE EVENT DATE: 20220301
